FAERS Safety Report 9802575 (Version 1)
Quarter: 2014Q1

REPORT INFORMATION
  Report Type: Spontaneous
  Country: US (occurrence: US)
  Receive Date: 20140108
  Receipt Date: 20140108
  Transmission Date: 20141002
  Serious: No
  Sender: FDA-Public Use
  Company Number: US-B.I. PHARMACEUTICALS,INC./RIDGEFIELD-2014-BI-00007BP

PATIENT
  Age: 75 Year
  Sex: Male
  Weight: 66 kg

DRUGS (2)
  1. COMBIVENT [Suspect]
     Indication: CHRONIC OBSTRUCTIVE PULMONARY DISEASE
     Dosage: FORMULATION: INHALATION SPRAY, STRENGTH: 20 MCG / 100 MCG; DAILY DOSE: 80MCG/100MCG
     Route: 055
     Dates: start: 201306
  2. COMBIVENT CFC [Concomitant]
     Indication: EMPHYSEMA
     Dosage: FORMULATION: INHALATION AEROSOL, STRENGTH: 18MCG/103MCG;
     Route: 055
     Dates: start: 2005

REACTIONS (1)
  - Blood pressure increased [Not Recovered/Not Resolved]
